FAERS Safety Report 7582898-1 (Version None)
Quarter: 2011Q2

REPORT INFORMATION
  Report Type: 
  Country: None (occurrence: None)
  Receive Date: 20110630
  Receipt Date: 20110620
  Transmission Date: 20111010
  Serious: Yes (Other)
  Sender: FDA-Public Use
  Company Number: GB-ELI_LILLY_AND_COMPANY-GB201106006783

PATIENT
  Age: 28 Year
  Sex: Male

DRUGS (3)
  1. CIALIS [Suspect]
     Dosage: 5 MG, QD
  2. CIALIS [Suspect]
     Indication: ERECTILE DYSFUNCTION
     Dosage: 10 MG, 2/W
  3. CIALIS [Suspect]
     Dosage: 20 MG, 2/W

REACTIONS (1)
  - OPTIC ISCHAEMIC NEUROPATHY [None]
